FAERS Safety Report 5177478-1 (Version None)
Quarter: 2006Q4

REPORT INFORMATION
  Report Type: 
  Country: None (occurrence: None)
  Receive Date: 20061207
  Receipt Date: 20061125
  Transmission Date: 20070319
  Serious: Yes (Other)
  Sender: FDA-Public Use
  Company Number: 2006136205

PATIENT
  Age: 33 Year
  Sex: Female
  Weight: 86.1834 kg

DRUGS (1)
  1. LYRICA [Suspect]
     Indication: NEUROPATHY
     Dosage: 1 D
     Dates: start: 20060101, end: 20060101

REACTIONS (4)
  - DISTURBANCE IN ATTENTION [None]
  - DYSURIA [None]
  - FEELING ABNORMAL [None]
  - MENTAL IMPAIRMENT [None]
